FAERS Safety Report 9104340 (Version 1)
Quarter: 2013Q1

REPORT INFORMATION
  Report Type: Spontaneous
  Country: FI (occurrence: FI)
  Receive Date: 20130219
  Receipt Date: 20130219
  Transmission Date: 20140127
  Serious: Yes (Other)
  Sender: FDA-Public Use
  Company Number: FI-UCBSA-078328

PATIENT
  Age: 0 None
  Sex: Male
  Weight: 2.22 kg

DRUGS (17)
  1. VIMPAT [Suspect]
     Indication: STATUS EPILEPTICUS
     Route: 064
     Dates: start: 201207, end: 201207
  2. VIMPAT [Suspect]
     Indication: STATUS EPILEPTICUS
     Route: 064
     Dates: start: 20120730
  3. KEPPRA [Suspect]
     Indication: STATUS EPILEPTICUS
     Route: 064
     Dates: start: 20120729
  4. ALBETOL [Concomitant]
     Indication: BLOOD PRESSURE
     Route: 064
     Dates: start: 20120817
  5. FOLVITE [Concomitant]
     Indication: HIGH RISK PREGNANCY
     Route: 064
     Dates: start: 20120816
  6. KLEXANE [Concomitant]
     Indication: INTRACRANIAL VENOUS SINUS THROMBOSIS
     Route: 064
     Dates: start: 20120729
  7. PHENYTOINE [Concomitant]
     Route: 064
  8. STESOLID [Concomitant]
     Route: 064
  9. ATIVAN [Concomitant]
     Route: 064
  10. OBSIDAN [Concomitant]
     Indication: IRON DEFICIENCY ANAEMIA
     Route: 064
     Dates: start: 20120815, end: 20120903
  11. PRO-EPANUTIN [Concomitant]
     Route: 064
     Dates: start: 20120729, end: 20120814
  12. HYDANTIN [Concomitant]
     Route: 064
     Dates: start: 20120814, end: 20120910
  13. TAZOCIN [Concomitant]
     Indication: PNEUMONIA
     Route: 064
     Dates: end: 20120830
  14. HEPARIN [Concomitant]
     Indication: INTRACRANIAL VENOUS SINUS THROMBOSIS
     Route: 064
     Dates: start: 20120728, end: 20120729
  15. AMOXIN COMP [Concomitant]
     Indication: PNEUMONIA
     Route: 064
     Dates: start: 20120820, end: 20120828
  16. BIOPHILUS [Concomitant]
     Indication: PROPHYLAXIS
     Route: 064
     Dates: start: 20120820, end: 20120824
  17. SOMAC [Concomitant]
     Indication: PROPHYLAXIS AGAINST GASTROINTESTINAL ULCER
     Route: 064
     Dates: start: 20120729, end: 20120814

REACTIONS (2)
  - Premature baby [Recovered/Resolved]
  - Foetal exposure during pregnancy [Recovered/Resolved]
